FAERS Safety Report 13031207 (Version 1)
Quarter: 2016Q4

REPORT INFORMATION
  Report Type: Spontaneous
  Country: NO (occurrence: NO)
  Receive Date: 20161215
  Receipt Date: 20161215
  Transmission Date: 20170207
  Serious: Yes (Hospitalization)
  Sender: FDA-Public Use
  Company Number: NO-GLAXOSMITHKLINE-NO2016182067

PATIENT
  Age: 0 Day
  Sex: Female

DRUGS (2)
  1. LAMICTAL [Suspect]
     Active Substance: LAMOTRIGINE
     Indication: PRODUCT USED FOR UNKNOWN INDICATION
     Dosage: MATERNAL DOSE
     Route: 064
  2. LAMICTAL [Suspect]
     Active Substance: LAMOTRIGINE
     Dosage: CURRENTLY 200 MG MORNING + 150 MG EVENING, FOLLOWING A GRADUAL DOSE REDUCTION PLAN
     Route: 063

REACTIONS (7)
  - Vomiting [Recovering/Resolving]
  - Somnolence [Recovering/Resolving]
  - Exposure during breast feeding [Recovering/Resolving]
  - Lethargy [Recovering/Resolving]
  - Nausea [Recovering/Resolving]
  - Hyperbilirubinaemia neonatal [Recovering/Resolving]
  - Selective eating disorder [Recovering/Resolving]

NARRATIVE: CASE EVENT DATE: 20161119
